FAERS Safety Report 5329173-3 (Version None)
Quarter: 2007Q2

REPORT INFORMATION
  Report Type: 
  Country: None (occurrence: None)
  Receive Date: 20070518
  Receipt Date: 20070506
  Transmission Date: 20071010
  Serious: Yes (Hospitalization, Other)
  Sender: FDA-Public Use
  Company Number: US-PFIZER INC-2007022211

PATIENT
  Sex: Male
  Weight: 67.6 kg

DRUGS (12)
  1. EXUBERA [Suspect]
     Indication: DIABETES MELLITUS NON-INSULIN-DEPENDENT
  2. BYETTA [Suspect]
     Indication: DIABETES MELLITUS
  3. BYETTA [Suspect]
     Indication: OBESITY
  4. GLUCOSE [Suspect]
     Indication: BLOOD GLUCOSE DECREASED
     Route: 042
     Dates: start: 20070312, end: 20070313
  5. GLIMEPIRIDE [Suspect]
     Indication: DIABETES MELLITUS NON-INSULIN-DEPENDENT
  6. LANTUS [Concomitant]
  7. VALSARTAN [Concomitant]
  8. SIMVASTATIN [Concomitant]
  9. COREG [Concomitant]
  10. ACIPHEX [Concomitant]
  11. DIURETICS [Concomitant]
     Dosage: FREQ:DAILY
  12. ASPIRIN [Concomitant]

REACTIONS (3)
  - BLOOD GLUCOSE DECREASED [None]
  - BLOOD GLUCOSE INCREASED [None]
  - CONVULSION [None]
